FAERS Safety Report 14917791 (Version 1)
Quarter: 2018Q2

REPORT INFORMATION
  Report Type: Spontaneous
  Country: US (occurrence: US)
  Receive Date: 20180521
  Receipt Date: 20180521
  Transmission Date: 20180711
  Serious: No
  Sender: FDA-Public Use
  Company Number: US-BAUSCH-BL-2017-023672

PATIENT
  Sex: Female
  Weight: 49.94 kg

DRUGS (2)
  1. PENICILLAMINE [Suspect]
     Active Substance: PENICILLAMINE
     Indication: PRODUCT USED FOR UNKNOWN INDICATION
     Route: 048
     Dates: start: 1994, end: 1994
  2. PENICILLAMINE [Suspect]
     Active Substance: PENICILLAMINE
     Route: 048
     Dates: start: 20170707

REACTIONS (1)
  - Drug hypersensitivity [Recovered/Resolved]

NARRATIVE: CASE EVENT DATE: 1994
